FAERS Safety Report 19182083 (Version 1)
Quarter: 2021Q2

REPORT INFORMATION
  Report Type: Spontaneous
  Country: IL (occurrence: IL)
  Receive Date: 20210426
  Receipt Date: 20210426
  Transmission Date: 20210717
  Serious: Yes (Hospitalization, Other)
  Sender: FDA-Public Use
  Company Number: IL-PURDUE-USA-2021-0250818

PATIENT
  Age: 60 Year
  Sex: Male

DRUGS (23)
  1. TRAMADEX [Concomitant]
     Active Substance: TRAMADOL
     Dosage: UNK
  2. NOCTURNO [Concomitant]
     Dosage: UNK
  3. REKOD [Concomitant]
     Dosage: UNK
  4. TARGIN [Concomitant]
     Active Substance: NALOXONE HYDROCHLORIDE\OXYCODONE HYDROCHLORIDE
     Dosage: UNK
     Dates: start: 20140607
  5. CODIVIS [Concomitant]
     Dosage: UNK
  6. ZODORM                             /00914902/ [Concomitant]
     Dosage: UNK
  7. VABEN [Concomitant]
     Active Substance: OXAZEPAM
     Dosage: UNK
  8. MIRO                               /01293201/ [Concomitant]
     Dosage: UNK
  9. OXYCOD                             /00045603/ [Concomitant]
     Active Substance: OXYCODONE HYDROCHLORIDE
     Dosage: UNK
     Dates: start: 20130712
  10. PERCOCET [Concomitant]
     Active Substance: ACETAMINOPHEN\OXYCODONE HYDROCHLORIDE
     Dosage: UNK, SINGLE
     Dates: start: 2015
  11. OXYCONTIN [Suspect]
     Active Substance: OXYCODONE HYDROCHLORIDE
     Indication: ARTHRALGIA
     Dosage: 10 MG, TID
     Route: 065
     Dates: start: 20150110
  12. TARGIN [Concomitant]
     Active Substance: NALOXONE HYDROCHLORIDE\OXYCODONE HYDROCHLORIDE
     Dosage: 10 MG, BID
     Dates: start: 20130712
  13. CODEINE [Concomitant]
     Active Substance: CODEINE
     Dosage: UNK
  14. LORIVAN [Concomitant]
     Active Substance: LORAZEPAM
     Dosage: UNK
  15. TARGIN [Concomitant]
     Active Substance: NALOXONE HYDROCHLORIDE\OXYCODONE HYDROCHLORIDE
     Dosage: 10 MG, BID
     Dates: start: 20130716
  16. ASSIVAL [Concomitant]
     Dosage: UNK
  17. BONDORMIN [Concomitant]
     Active Substance: BROTIZOLAM
     Dosage: UNK
  18. TARGIN [Concomitant]
     Active Substance: NALOXONE HYDROCHLORIDE\OXYCODONE HYDROCHLORIDE
     Dosage: UNK
     Dates: start: 201410
  19. CLONEX                             /00285201/ [Concomitant]
     Dosage: UNK
  20. TARGIN [Concomitant]
     Active Substance: NALOXONE HYDROCHLORIDE\OXYCODONE HYDROCHLORIDE
     Dosage: 10 MG, BID
     Dates: start: 20130709
  21. NUMBON [Concomitant]
     Dosage: UNK
  22. ALPRALID [Concomitant]
     Dosage: UNK
  23. STILNOX [Concomitant]
     Active Substance: ZOLPIDEM TARTRATE
     Dosage: UNK

REACTIONS (2)
  - Drug dependence [Unknown]
  - Major depression [Unknown]

NARRATIVE: CASE EVENT DATE: 20150323
